FAERS Safety Report 8206878-8 (Version None)
Quarter: 2012Q1

REPORT INFORMATION
  Report Type: 
  Country: None (occurrence: None)
  Receive Date: 20120312
  Receipt Date: 20120306
  Transmission Date: 20120608
  Serious: Yes (Other)
  Sender: FDA-Public Use
  Company Number: 939441

PATIENT

DRUGS (2)
  1. LITTLE TUMMYS LAXATIVE DROPS [Suspect]
  2. LITTLE TUMMYS LAXATIVE [Suspect]

REACTIONS (3)
  - GASTROINTESTINAL HAEMORRHAGE [None]
  - PRODUCT TASTE ABNORMAL [None]
  - LIQUID PRODUCT PHYSICAL ISSUE [None]
